FAERS Safety Report 5924923-7 (Version None)
Quarter: 2008Q4

REPORT INFORMATION
  Report Type: 
  Country: None (occurrence: None)
  Receive Date: 20081021
  Receipt Date: 20080915
  Transmission Date: 20090506
  Serious: No
  Sender: FDA-Public Use
  Company Number: US-BAYER-200833642NA

PATIENT
  Age: 20 Year

DRUGS (1)
  1. BETASERON [Suspect]
     Indication: MULTIPLE SCLEROSIS
     Dosage: TOTAL DAILY DOSE: 250 ?G
     Route: 058
     Dates: start: 20071201

REACTIONS (1)
  - HYPOAESTHESIA [None]
